FAERS Safety Report 5777316-X (Version None)
Quarter: 2008Q2

REPORT INFORMATION
  Report Type: 
  Country: None (occurrence: None)
  Receive Date: 20080618
  Receipt Date: 20080609
  Transmission Date: 20081010
  Serious: Yes (Other)
  Sender: FDA-Public Use
  Company Number: PHHY2008AT10179

PATIENT
  Sex: Female

DRUGS (2)
  1. EXFORGE [Suspect]
     Indication: HYPERTENSION
     Dosage: 10/160 MG DAILY
     Route: 048
     Dates: start: 20080325, end: 20080423
  2. ITERIUM [Concomitant]
     Dosage: 1 MG/DAY

REACTIONS (3)
  - DISEASE PROGRESSION [None]
  - FACE OEDEMA [None]
  - OEDEMA PERIPHERAL [None]
